FAERS Safety Report 7468322-8 (Version None)
Quarter: 2011Q2

REPORT INFORMATION
  Report Type: 
  Country: None (occurrence: None)
  Receive Date: 20110509
  Receipt Date: 20110429
  Transmission Date: 20111010
  Serious: Yes (Hospitalization)
  Sender: FDA-Public Use
  Company Number: FR-SANOFI-AVENTIS-2011SA026896

PATIENT
  Age: 85 Year
  Sex: Male

DRUGS (15)
  1. AUGMENTIN [Interacting]
     Route: 042
     Dates: start: 20110318
  2. MODOPAR [Concomitant]
     Route: 048
  3. ASPIRIN [Interacting]
     Route: 048
     Dates: end: 20110406
  4. ERYTHROMYCIN [Concomitant]
     Route: 065
     Dates: start: 20110318, end: 20110329
  5. REQUIP [Concomitant]
     Indication: PARKINSON'S DISEASE
     Route: 048
  6. AMANTADINE HCL [Concomitant]
     Indication: PARKINSON'S DISEASE
     Route: 048
  7. AUGMENTIN [Interacting]
     Route: 048
     Dates: end: 20110329
  8. LOVENOX [Suspect]
     Route: 058
     Dates: start: 20110313
  9. CORDARONE [Interacting]
     Indication: ARRHYTHMIA
     Route: 048
     Dates: start: 20110320, end: 20110327
  10. CORDARONE [Interacting]
     Route: 048
     Dates: start: 20110328
  11. CARDENSIEL [Concomitant]
     Indication: HYPERTENSION
     Route: 048
  12. PREVISCAN [Interacting]
     Indication: ARRHYTHMIA
     Route: 048
     Dates: start: 20110320, end: 20110405
  13. LOVENOX [Interacting]
     Route: 058
     Dates: end: 20110329
  14. SINEMET [Concomitant]
     Indication: PARKINSON'S DISEASE
     Route: 048
  15. AMITRIPTYLINE HCL [Interacting]
     Indication: DEPRESSION
     Route: 048

REACTIONS (6)
  - WOUND HAEMORRHAGE [None]
  - MUSCLE HAEMORRHAGE [None]
  - EPISTAXIS [None]
  - DRUG INTERACTION [None]
  - ANAEMIA [None]
  - LABILE BLOOD PRESSURE [None]
